FAERS Safety Report 24339582 (Version 1)
Quarter: 2024Q3

REPORT INFORMATION
  Report Type: Spontaneous
  Country: US (occurrence: US)
  Receive Date: 20240919
  Receipt Date: 20240919
  Transmission Date: 20241017
  Serious: No
  Sender: GILEAD
  Company Number: US-GILEAD-2024-0688202

PATIENT
  Sex: Female

DRUGS (2)
  1. DESCOVY [Suspect]
     Active Substance: EMTRICITABINE\TENOFOVIR ALAFENAMIDE FUMARATE
     Indication: Product used for unknown indication
     Dosage: UNK
     Route: 065
  2. TIVICAY [Concomitant]
     Active Substance: DOLUTEGRAVIR SODIUM

REACTIONS (1)
  - Product storage error [Unknown]
